FAERS Safety Report 7503234-2 (Version None)
Quarter: 2011Q2

REPORT INFORMATION
  Report Type: 
  Country: None (occurrence: None)
  Receive Date: 20110525
  Receipt Date: 20110513
  Transmission Date: 20111010
  Serious: Yes (Other)
  Sender: FDA-Public Use
  Company Number: US-JNJFOC-20110508371

PATIENT
  Sex: Female
  Weight: 46.27 kg

DRUGS (3)
  1. PREMARIN [Concomitant]
     Indication: HYSTERECTOMY
     Route: 048
     Dates: start: 20050101
  2. DILANTIN [Concomitant]
     Indication: CONVULSION
     Route: 048
  3. DURAGESIC-100 [Suspect]
     Indication: COMPLEX REGIONAL PAIN SYNDROME
     Route: 062
     Dates: start: 20090101

REACTIONS (2)
  - WITHDRAWAL SYNDROME [None]
  - FOOT FRACTURE [None]
